FAERS Safety Report 9182062 (Version 1)
Quarter: 2012Q4

REPORT INFORMATION
  Report Type: 
  Country: FR (occurrence: FR)
  Receive Date: 20121030
  Receipt Date: 20121030
  Transmission Date: 20130627
  Serious: Yes (Other)
  Sender: FDA-Public Use
  Company Number: PHHY2012FR090921

PATIENT
  Sex: Female
  Weight: 74 kg

DRUGS (5)
  1. XOLAIR [Suspect]
     Indication: ASTHMA
     Dosage: 600 mg, every 15 days
     Route: 058
     Dates: start: 201012
  2. XOLAIR [Suspect]
     Dosage: 525 mg, every 15 days
     Dates: start: 201104
  3. XOLAIR [Suspect]
     Dosage: 600 mg, every 15 days
     Dates: start: 201109
  4. FORADILE [Suspect]
     Indication: ASTHMA
     Dosage: 12 ug, BID
  5. SINGULAIR [Suspect]
     Indication: ASTHMA
     Dosage: 10 mg, UNK

REACTIONS (5)
  - Muscle disorder [Unknown]
  - Blood creatine phosphokinase increased [Not Recovered/Not Resolved]
  - Acute respiratory failure [Unknown]
  - Myalgia [Not Recovered/Not Resolved]
  - Asthma [Unknown]
